FAERS Safety Report 8814188 (Version 1)
Quarter: 2012Q4

REPORT INFORMATION
  Report Type: Spontaneous
  Country: US (occurrence: None)
  Receive Date: 20120926
  Receipt Date: 20120926
  Transmission Date: 20130627
  Serious: Yes (Other)
  Sender: FDA-Public Use
  Company Number: None

PATIENT
  Age: 34 Year
  Sex: Female
  Weight: 81.65 kg

DRUGS (2)
  1. CLONAZEPAM [Suspect]
     Indication: ANXIETY
     Dosage: .1 2 a day po
     Route: 048
     Dates: start: 20100501, end: 20120925
  2. CLONAZEPAM [Suspect]
     Indication: PANIC ATTACK
     Dosage: .1 2 a day po
     Route: 048
     Dates: start: 20100501, end: 20120925

REACTIONS (5)
  - Pregnancy [None]
  - Maternal exposure during pregnancy [None]
  - Abortion spontaneous [None]
  - Loss of consciousness [None]
  - Haematocrit decreased [None]
